FAERS Safety Report 19941967 (Version 1)
Quarter: 2021Q4

REPORT INFORMATION
  Report Type: Spontaneous
  Country: US (occurrence: US)
  Receive Date: 20211011
  Receipt Date: 20211011
  Transmission Date: 20220303
  Serious: Yes (unspecified)
  Sender: FDA-Public Use
  Company Number: None

PATIENT
  Age: 84 Year
  Sex: Male
  Weight: 97.5 kg

DRUGS (2)
  1. GAMUNEX-C [Suspect]
     Active Substance: HUMAN IMMUNOGLOBULIN G
     Indication: Kidney transplant rejection
     Dosage: ?          OTHER FREQUENCY:ONE TIME IV INFUSI;
     Route: 041
     Dates: start: 20211010, end: 20211010
  2. Solu-Cortef 100 mg [Concomitant]
     Dates: start: 20211010, end: 20211010

REACTIONS (2)
  - Infusion related reaction [None]
  - Back pain [None]

NARRATIVE: CASE EVENT DATE: 20211010
